FAERS Safety Report 6115313-5 (Version None)
Quarter: 2009Q1

REPORT INFORMATION
  Report Type: 
  Country: None (occurrence: None)
  Receive Date: 20090313
  Receipt Date: 20090306
  Transmission Date: 20090719
  Serious: Yes (Other)
  Sender: FDA-Public Use
  Company Number: GB-ABBOTT-09P-167-0561035-00

PATIENT
  Age: 36 Year
  Sex: Male

DRUGS (13)
  1. VALPROATE SODIUM [Suspect]
     Indication: EPILEPSY
     Route: 048
     Dates: start: 19770101, end: 19820101
  2. VALPROATE SODIUM [Suspect]
     Route: 048
     Dates: start: 19820101, end: 19870101
  3. VALPROATE SODIUM [Suspect]
     Route: 048
     Dates: start: 19880101, end: 19970101
  4. EPILIM CHRONO TABLETS [Suspect]
     Indication: DRUG USE FOR UNKNOWN INDICATION
     Route: 048
     Dates: start: 19970101, end: 20040101
  5. EPILIM CHRONO TABLETS [Suspect]
     Route: 048
     Dates: start: 20040101
  6. PAROXETINE HCL [Interacting]
     Indication: DRUG USE FOR UNKNOWN INDICATION
  7. PARACETAMOL [Concomitant]
     Indication: DRUG USE FOR UNKNOWN INDICATION
  8. FYBOGEL [Concomitant]
     Indication: CONSTIPATION
  9. BALNEUM PLUS [Concomitant]
     Indication: SKIN DISORDER
  10. IBUGEL [Concomitant]
     Indication: POSTOPERATIVE ANALGESIA
  11. IBUGEL [Concomitant]
     Indication: INTERVERTEBRAL DISC OPERATION
  12. OILATUM CREAM [Concomitant]
     Indication: SKIN DISORDER
  13. POLYTAR [Concomitant]
     Indication: SKIN DISORDER

REACTIONS (12)
  - AMNESIA [None]
  - CONVULSION [None]
  - DISTURBANCE IN ATTENTION [None]
  - DRUG INTERACTION [None]
  - GYNAECOMASTIA [None]
  - HYPERTRICHOSIS [None]
  - MALAISE [None]
  - MOOD ALTERED [None]
  - SOMNOLENCE [None]
  - TREMOR [None]
  - URINARY INCONTINENCE [None]
  - URTICARIA [None]
